FAERS Safety Report 19132289 (Version 2)
Quarter: 2021Q2

REPORT INFORMATION
  Report Type: Spontaneous
  Country: US (occurrence: US)
  Receive Date: 20210413
  Receipt Date: 20210628
  Transmission Date: 20210717
  Serious: Yes (Other)
  Sender: FDA-Public Use
  Company Number: US-TEVA-2021-US-1900100

PATIENT
  Age: 63 Year
  Sex: Female

DRUGS (8)
  1. PREDNISONE. [Suspect]
     Active Substance: PREDNISONE
     Indication: VESTIBULAR NEURONITIS
     Dosage: 60 MG WITH A GRADUAL TAPER OVER THE NEXT 10 DAYS
     Route: 065
  2. CALCIUM [Concomitant]
     Active Substance: CALCIUM
     Indication: SUPPLEMENTATION THERAPY
     Route: 065
  3. PREDNISONE. [Suspect]
     Active Substance: PREDNISONE
     Indication: VIRAL INFECTION
  4. ASPIRIN. [Concomitant]
     Active Substance: ASPIRIN
     Indication: ORAL HERPES
     Route: 065
  5. MECLIZINE [Concomitant]
     Active Substance: MECLIZINE HYDROCHLORIDE
     Indication: VESTIBULAR NEURONITIS
     Route: 065
  6. MECLIZINE [Concomitant]
     Active Substance: MECLIZINE HYDROCHLORIDE
     Indication: VIRAL INFECTION
  7. IRON [Concomitant]
     Active Substance: IRON
     Indication: APLASTIC ANAEMIA
     Dosage: FORMULATION: PILLS
     Route: 065
  8. MULTIVITAMIN [Concomitant]
     Active Substance: VITAMINS
     Indication: SUPPLEMENTATION THERAPY
     Route: 065

REACTIONS (2)
  - Vitreous detachment [Recovering/Resolving]
  - Intraocular pressure increased [Recovering/Resolving]
